FAERS Safety Report 7311989-5 (Version None)
Quarter: 2011Q1

REPORT INFORMATION
  Report Type: 
  Country: None (occurrence: None)
  Receive Date: 20110224
  Receipt Date: 20110217
  Transmission Date: 20110831
  Serious: No
  Sender: FDA-Public Use
  Company Number: JP-PFIZER INC-2011027500

PATIENT
  Age: 52 Year
  Sex: Female

DRUGS (3)
  1. LOXONIN [Concomitant]
     Route: 048
  2. LYRICA [Suspect]
     Indication: POST HERPETIC NEURALGIA
     Dosage: 100 MG DAILY
     Route: 048
     Dates: start: 20110202, end: 20110208
  3. MUCOSTA [Concomitant]
     Route: 048

REACTIONS (1)
  - FAECES DISCOLOURED [None]
